FAERS Safety Report 10688242 (Version 3)
Quarter: 2015Q1

REPORT INFORMATION
  Report Type: Spontaneous
  Country: DE (occurrence: DE)
  Receive Date: 20150102
  Receipt Date: 20150212
  Transmission Date: 20150720
  Serious: Yes (Other)
  Sender: FDA-Public Use
  Company Number: DE-PFIZER INC-2013319040

PATIENT
  Age: 51 Year
  Sex: Female
  Weight: 84 kg

DRUGS (5)
  1. FUROSEMID [Concomitant]
     Active Substance: FUROSEMIDE
     Dosage: 10 MG, UNK
  2. L-THYROXIN [Concomitant]
     Active Substance: LEVOTHYROXINE SODIUM
     Dosage: 50 UNSPECIFIED UNIT
  3. XALKORI [Suspect]
     Active Substance: CRIZOTINIB
     Indication: NON-SMALL CELL LUNG CANCER METASTATIC
     Dosage: 250 MG, 2X/DAY, CYCLIC
     Route: 048
     Dates: start: 20131005
  4. PANTOPRAZOLE [Concomitant]
     Active Substance: PANTOPRAZOLE SODIUM
     Dosage: 40 MG, UNK
  5. FOLSAN [Concomitant]
     Active Substance: FOLIC ACID
     Dosage: 0.4 UNSPECIFIED UNIT

REACTIONS (13)
  - Renal cyst [Not Recovered/Not Resolved]
  - Fungal cystitis [Unknown]
  - Photopsia [Not Recovered/Not Resolved]
  - Nephrolithiasis [Not Recovered/Not Resolved]
  - Osteoarthritis [Not Recovered/Not Resolved]
  - Bone pain [Not Recovered/Not Resolved]
  - Nausea [Not Recovered/Not Resolved]
  - Fatigue [Not Recovered/Not Resolved]
  - Oedema peripheral [Not Recovered/Not Resolved]
  - Abdominal distension [Not Recovered/Not Resolved]
  - Rash [Recovered/Resolved]
  - Arthralgia [Not Recovered/Not Resolved]
  - Influenza [Unknown]

NARRATIVE: CASE EVENT DATE: 201310
